FAERS Safety Report 13670125 (Version 1)
Quarter: 2017Q2

REPORT INFORMATION
  Report Type: Spontaneous
  Country: US (occurrence: US)
  Receive Date: 20170620
  Receipt Date: 20170620
  Transmission Date: 20170830
  Serious: Yes (Other)
  Sender: FDA-Public Use
  Company Number: US-NOVOPROD-549982

PATIENT
  Age: 66 Year
  Sex: Female

DRUGS (4)
  1. LASIX + K [Concomitant]
     Active Substance: FUROSEMIDE\POTASSIUM CHLORIDE
     Indication: FLUID RETENTION
  2. TRESIBA [Concomitant]
     Active Substance: INSULIN DEGLUDEC
     Indication: TYPE 2 DIABETES MELLITUS
     Dosage: UNK
     Route: 058
  3. NOVOLOG [Suspect]
     Active Substance: INSULIN ASPART
     Indication: TYPE 2 DIABETES MELLITUS
     Dosage: UNK
     Route: 058
  4. LEVEMIR [Concomitant]
     Active Substance: INSULIN DETEMIR
     Indication: TYPE 2 DIABETES MELLITUS
     Dosage: UNK
     Route: 058

REACTIONS (7)
  - Angina pectoris [Unknown]
  - Coronary arterial stent insertion [Unknown]
  - Blood glucose decreased [Recovered/Resolved]
  - Fibrocystic breast disease [Unknown]
  - Red blood cell abnormality [Unknown]
  - Thyroid disorder [Unknown]
  - Blood glucose increased [Recovered/Resolved]
